FAERS Safety Report 24410587 (Version 1)
Quarter: 2024Q4

REPORT INFORMATION
  Report Type: Spontaneous
  Country: GB (occurrence: GB)
  Receive Date: 20241008
  Receipt Date: 20241008
  Transmission Date: 20250115
  Serious: Yes (Hospitalization, Disabling, Other)
  Sender: ALKEM
  Company Number: GB-ALKEM LABORATORIES LIMITED-GB-ALKEM-2024-22828

PATIENT
  Age: 7 Decade
  Sex: Male

DRUGS (10)
  1. TACROLIMUS [Suspect]
     Active Substance: TACROLIMUS
     Indication: Immunosuppressant drug therapy
     Dosage: 0.5 MILLIGRAM (EVERY 4 DAYS)
     Route: 065
  2. TACROLIMUS [Suspect]
     Active Substance: TACROLIMUS
     Dosage: 0.5 MILLIGRAM (EVERY 3 HOURS)
     Route: 065
  3. TACROLIMUS [Suspect]
     Active Substance: TACROLIMUS
     Dosage: 0.5 MILLIGRAM, BID (EVERY 12 HOUR)
     Route: 065
  4. TACROLIMUS [Suspect]
     Active Substance: TACROLIMUS
     Dosage: 1 MILLIGRAM, BID (EVERY 12 HOUR)
     Route: 065
  5. LINEZOLID [Suspect]
     Active Substance: LINEZOLID
     Indication: Immunosuppressant drug therapy
     Dosage: 600 MILLIGRAM, BID
     Route: 065
  6. LINEZOLID [Suspect]
     Active Substance: LINEZOLID
     Dosage: 600 MILLIGRAM, OD
     Route: 065
  7. PREDNISOLONE [Suspect]
     Active Substance: PREDNISOLONE
     Indication: Immunosuppressant drug therapy
     Dosage: 2 MILLIGRAM
     Route: 065
  8. TIGECYCLINE [Suspect]
     Active Substance: TIGECYCLINE
     Indication: Antibiotic therapy
     Dosage: 100 MILLIGRAM, OD
     Route: 042
  9. TIGECYCLINE [Suspect]
     Active Substance: TIGECYCLINE
     Dosage: 50 MICROGRAM, OD
     Route: 042
  10. TIGECYCLINE [Suspect]
     Active Substance: TIGECYCLINE
     Dosage: 75 MILLIGRAM
     Route: 042

REACTIONS (15)
  - Traumatic fracture [Recovering/Resolving]
  - Hand fracture [Recovering/Resolving]
  - Osteopenia [Recovering/Resolving]
  - Abscess [Recovering/Resolving]
  - Localised infection [Recovering/Resolving]
  - Renal impairment [Recovered/Resolved]
  - Mycobacterium chelonae infection [Recovering/Resolving]
  - Abscess bacterial [Recovering/Resolving]
  - Skin bacterial infection [Recovering/Resolving]
  - Decreased appetite [Unknown]
  - Skin mass [Unknown]
  - Nausea [Unknown]
  - Anaemia [Unknown]
  - Vomiting [Unknown]
  - Weight decreased [Unknown]
